FAERS Safety Report 8428711-1 (Version None)
Quarter: 2012Q2

REPORT INFORMATION
  Report Type: 
  Country: None (occurrence: None)
  Receive Date: 20120605
  Receipt Date: 20120523
  Transmission Date: 20120825
  Serious: Yes (Hospitalization)
  Sender: FDA-Public Use
  Company Number: 2012-001727

PATIENT
  Sex: Male

DRUGS (1)
  1. ACTONEL (RISEDRONATE SODIIUM) TABLET, UNKMG [Suspect]
     Indication: OSTEOPOROSIS
     Dosage: ORAL
     Route: 048

REACTIONS (4)
  - LOOSE TOOTH [None]
  - VERTIGO [None]
  - DIZZINESS [None]
  - PAIN IN JAW [None]
